FAERS Safety Report 11232463 (Version 1)
Quarter: 2015Q3

REPORT INFORMATION
  Report Type: Spontaneous
  Country: US (occurrence: US)
  Receive Date: 20150701
  Receipt Date: 20150701
  Transmission Date: 20151125
  Serious: No
  Sender: FDA-Public Use
  Company Number: US-PFIZER INC-2015212963

PATIENT

DRUGS (4)
  1. NORCO [Suspect]
     Active Substance: ACETAMINOPHEN\HYDROCODONE BITARTRATE
  2. ADVIL [Suspect]
     Active Substance: IBUPROFEN
     Indication: ARTHROPATHY
     Dosage: 400 MG, 4-6 TIMES IN A DAY
  3. ADVIL [Suspect]
     Active Substance: IBUPROFEN
     Indication: PAIN
  4. BAYER ASPIRIN [Suspect]
     Active Substance: ASPIRIN

REACTIONS (5)
  - Hypersensitivity [Unknown]
  - Throat irritation [Unknown]
  - Reaction to drug excipients [Unknown]
  - Intentional product misuse [Unknown]
  - Pruritus [Unknown]
